FAERS Safety Report 5795648-6 (Version None)
Quarter: 2008Q2

REPORT INFORMATION
  Report Type: 
  Country: None (occurrence: None)
  Receive Date: 20080630
  Receipt Date: 20080618
  Transmission Date: 20081010
  Serious: Yes (Other)
  Sender: FDA-Public Use
  Company Number: AU-PFIZER INC-2008052458

PATIENT
  Age: 20 Year
  Sex: Female

DRUGS (1)
  1. CHANTIX [Suspect]
     Dates: start: 20080501, end: 20080617

REACTIONS (4)
  - ANGER [None]
  - DEPRESSED MOOD [None]
  - IRRITABILITY [None]
  - PARANOIA [None]
